FAERS Safety Report 24227195 (Version 1)
Quarter: 2024Q3

REPORT INFORMATION
  Report Type: Spontaneous
  Country: US (occurrence: US)
  Receive Date: 20240820
  Receipt Date: 20240820
  Transmission Date: 20241016
  Serious: Yes (Other)
  Sender: BRACCO
  Company Number: US-BRACCO-2024US05099

PATIENT
  Age: 52 Year
  Sex: Female

DRUGS (1)
  1. GADOBENATE DIMEGLUMINE [Suspect]
     Active Substance: GADOBENATE DIMEGLUMINE
     Indication: Magnetic resonance imaging head
     Dosage: UNK, SINGLE

REACTIONS (1)
  - Kounis syndrome [Recovered/Resolved]
